FAERS Safety Report 15191191 (Version 1)
Quarter: 2018Q3

REPORT INFORMATION
  Report Type: Spontaneous
  Country: US (occurrence: US)
  Receive Date: 20180724
  Receipt Date: 20180724
  Transmission Date: 20181010
  Serious: Yes (Hospitalization, Other)
  Sender: FDA-Public Use
  Company Number: US-AMGEN-USASP2018012896

PATIENT
  Age: 70 Year
  Sex: Male
  Weight: 69 kg

DRUGS (2)
  1. KYPROLIS [Suspect]
     Active Substance: CARFILZOMIB
     Indication: PLASMA CELL MYELOMA
     Dosage: 105 MG (56 MG/M2), UNK
     Route: 042
     Dates: start: 20170913, end: 201801
  2. KYPROLIS [Suspect]
     Active Substance: CARFILZOMIB
     Dosage: 105 MG (56 MG/M2), (WEDNESDAY AND THURSDAY WEEKLY )
     Route: 042
     Dates: start: 201801

REACTIONS (2)
  - Pneumonia [Recovered/Resolved]
  - Nausea [Unknown]

NARRATIVE: CASE EVENT DATE: 20180117
